FAERS Safety Report 15640588 (Version 1)
Quarter: 2018Q4

REPORT INFORMATION
  Report Type: Spontaneous
  Country: US (occurrence: US)
  Receive Date: 20181120
  Receipt Date: 20181120
  Transmission Date: 20190205
  Serious: No
  Sender: FDA-Public Use
  Company Number: US-OSMOTICA_PHARMACEUTICAL_US_LLC-POI0573201800174

PATIENT
  Age: 66 Year
  Sex: Male

DRUGS (3)
  1. NIFEDIPINE EXTENDED-RELEASE TABLETS [Suspect]
     Active Substance: NIFEDIPINE
     Indication: POOR PERIPHERAL CIRCULATION
     Dates: start: 2018
  2. NIFEDIPINE EXTENDED-RELEASE TABLETS [Suspect]
     Active Substance: NIFEDIPINE
     Dates: start: 201801, end: 2018
  3. NIFEDIPINE EXTENDED-RELEASE TABLETS [Suspect]
     Active Substance: NIFEDIPINE
     Dates: start: 2018, end: 2018

REACTIONS (1)
  - Drug effect variable [Not Recovered/Not Resolved]

NARRATIVE: CASE EVENT DATE: 201801
